FAERS Safety Report 8018167-5 (Version None)
Quarter: 2011Q4

REPORT INFORMATION
  Report Type: 
  Country: None (occurrence: None)
  Receive Date: 20111227
  Receipt Date: 20111220
  Transmission Date: 20120403
  Serious: Yes (Hospitalization)
  Sender: FDA-Public Use
  Company Number: 2011HGS-002737

PATIENT
  Age: 37 Year
  Sex: Female
  Weight: 80.7403 kg

DRUGS (10)
  1. DILAUDID (HYDROMORPHONE HYDROCHLORIDE) (HYDROMORPHONE HYDROCHLORIDE) [Concomitant]
  2. PERCOCET (OXYCOCET) (PARACETAMOL, OXYCODONE HYDROCHLORIDE) [Concomitant]
  3. PROMETHAZINE (PROMETHAZINE) (PROMETHAZINE) [Concomitant]
  4. AZATHIOPRINE (AZATHIOPRINE) (AZATHIOPRINE) [Concomitant]
  5. METHOTREXATE [Concomitant]
  6. BENLYSTA [Suspect]
     Indication: SYSTEMIC LUPUS ERYTHEMATOSUS
     Dosage: 818 MG, 1 IN 2 WK, INTRAVENOUS DRIP
     Route: 041
     Dates: start: 20111018
  7. VASODILAN (ISOXSUPRIDE HYDROCHLORIDE) (ISOXUPRINE HYDROCHLORIDE) [Concomitant]
  8. ALBUTEROL (SALBUTAMOL) (SALBUAMOL) [Concomitant]
  9. ACYCLOVIR (ACICLOVIR) (ACICLOVIR) [Concomitant]
  10. HYDROXYCHLOROQUINE (HYDROCHLOROQUINE) (HYDROXYCHLOROQUINE) [Concomitant]

REACTIONS (1)
  - MENINGITIS VIRAL [None]
